FAERS Safety Report 9753868 (Version 3)
Quarter: 2014Q1

REPORT INFORMATION
  Report Type: Spontaneous
  Country: US (occurrence: None)
  Receive Date: 20131211
  Receipt Date: 20140114
  Transmission Date: 20141002
  Serious: Yes (Other)
  Sender: FDA-Public Use
  Company Number: AUR-APL-2013-10263

PATIENT
  Age: 77 Year
  Sex: Male
  Weight: 104 kg

DRUGS (3)
  1. MELOXICAM [Suspect]
     Indication: ARTHRITIS
     Dosage: 15MG (15MG, 1 IN 1D)
     Dates: start: 20131130
  2. TIKOSYN (DOFETILIDE) [Suspect]
     Indication: ATRIAL FIBRILLATION
     Dosage: 0.5 MG (0.25 MG, 2 IN 1 D)
     Route: 048
     Dates: start: 201303
  3. XARELTO (RIVAROXABAN) [Concomitant]

REACTIONS (4)
  - Atrial fibrillation [None]
  - Drug interaction [None]
  - Heart rate increased [None]
  - Joint swelling [None]
